FAERS Safety Report 11544534 (Version 1)
Quarter: 2015Q3

REPORT INFORMATION
  Report Type: Spontaneous
  Country: FR (occurrence: FR)
  Receive Date: 20150924
  Receipt Date: 20150924
  Transmission Date: 20151125
  Serious: Yes (Hospitalization)
  Sender: FDA-Public Use
  Company Number: FR-TEVA-593614ISR

PATIENT
  Age: 10 Day
  Sex: Male
  Weight: 2 kg

DRUGS (1)
  1. PROGLYCEM [Suspect]
     Active Substance: DIAZOXIDE
     Indication: HYPERINSULINISM
     Dosage: 30 MILLIGRAM DAILY;
     Route: 048
     Dates: start: 20150723, end: 20150730

REACTIONS (2)
  - Subileus [Recovering/Resolving]
  - Meconium ileus [Recovering/Resolving]

NARRATIVE: CASE EVENT DATE: 20150727
